FAERS Safety Report 6119118-0 (Version None)
Quarter: 2009Q1

REPORT INFORMATION
  Report Type: 
  Country: None (occurrence: None)
  Receive Date: 20090316
  Receipt Date: 20090311
  Transmission Date: 20090719
  Serious: Yes (Hospitalization)
  Sender: FDA-Public Use
  Company Number: BE-CELGENEUS-013-C5013-07060367

PATIENT
  Sex: Female
  Weight: 66.1 kg

DRUGS (1)
  1. CC-5013 [Suspect]
     Route: 048
     Dates: start: 20061110

REACTIONS (1)
  - SKIN ULCER [None]
